FAERS Safety Report 21724543 (Version 2)
Quarter: 2022Q4

REPORT INFORMATION
  Report Type: Spontaneous
  Country: CA (occurrence: CA)
  Receive Date: 20221213
  Receipt Date: 20221216
  Transmission Date: 20230112
  Serious: Yes (Other)
  Sender: FDA-Public Use
  Company Number: CA-JNJFOC-20221165604

PATIENT

DRUGS (1)
  1. TYLENOL [Suspect]
     Active Substance: ACETAMINOPHEN
     Indication: Product used for unknown indication
     Route: 065

REACTIONS (6)
  - Gastric perforation [Unknown]
  - Anaemia [Unknown]
  - Liver disorder [Unknown]
  - Withdrawal syndrome [Unknown]
  - Anxiety [Unknown]
  - Sleep disorder [Unknown]
